FAERS Safety Report 8892323 (Version 1)
Quarter: 2012Q4

REPORT INFORMATION
  Report Type: 
  Country: US (occurrence: US)
  Receive Date: 20121107
  Receipt Date: 20121107
  Transmission Date: 20130627
  Serious: No
  Sender: FDA-Public Use
  Company Number: US-AMGEN-USASP2011055478

PATIENT
  Age: 42 Year
  Sex: Female
  Weight: 90.7 kg

DRUGS (4)
  1. ENBREL [Suspect]
     Indication: PRODUCT USED FOR UNKNOWN INDICATION
     Dosage: 50 mg, 2 times/wk
     Route: 058
  2. TYLENOL/COD #3 [Concomitant]
  3. CELEXA [Concomitant]
     Dosage: 10 mg, UNK
  4. TYLENOL [Concomitant]
     Dosage: 325 mg, UNK

REACTIONS (2)
  - Injection site erythema [Unknown]
  - Injection site pruritus [Unknown]
